FAERS Safety Report 10567301 (Version 1)
Quarter: 2014Q4

REPORT INFORMATION
  Report Type: Spontaneous
  Country: PH (occurrence: PH)
  Receive Date: 20141106
  Receipt Date: 20141106
  Transmission Date: 20150529
  Serious: Yes (Other)
  Sender: FDA-Public Use
  Company Number: PH-ACCORD-026835

PATIENT
  Sex: Female

DRUGS (1)
  1. PAXEL [Suspect]
     Active Substance: PACLITAXEL
     Indication: PRODUCT USED FOR UNKNOWN INDICATION
     Dosage: ^PAXEL^ 100MG/16.7ML?MFG. DATE: JAN-2013?EXP. DATE: DEC-2014

REACTIONS (5)
  - Flushing [Unknown]
  - Dyspnoea [Unknown]
  - Blood pressure increased [Unknown]
  - Hypersensitivity [Unknown]
  - Erythema [Unknown]
